FAERS Safety Report 21205571 (Version 3)
Quarter: 2022Q4

REPORT INFORMATION
  Report Type: Report from Study
  Country: US (occurrence: US)
  Receive Date: 20220812
  Receipt Date: 20221108
  Transmission Date: 20230113
  Serious: Yes (Hospitalization)
  Sender: FDA-Public Use
  Company Number: US-BoehringerIngelheim-2022-BI-186672

PATIENT
  Age: 57 Year
  Sex: Female

DRUGS (1)
  1. GILOTRIF [Suspect]
     Active Substance: AFATINIB
     Indication: Non-small cell lung cancer
     Route: 048
     Dates: start: 20220729, end: 2022

REACTIONS (5)
  - Muscle spasms [Unknown]
  - Thrombosis [Unknown]
  - Pneumonia [Unknown]
  - Alopecia [Unknown]
  - Diarrhoea [Unknown]
